FAERS Safety Report 4643328-2 (Version None)
Quarter: 2005Q2

REPORT INFORMATION
  Report Type: 
  Country: None (occurrence: None)
  Receive Date: 20050421
  Receipt Date: 20050408
  Transmission Date: 20051028
  Serious: Yes (Other)
  Sender: FDA-Public Use
  Company Number: 2005057499

PATIENT
  Age: 75 Year
  Sex: Male
  Weight: 68.9467 kg

DRUGS (5)
  1. CELEBREX [Suspect]
     Indication: ARTHRALGIA
     Dosage: (1 IN 1 D), ORAL
     Route: 048
     Dates: start: 20020101, end: 20020101
  2. BEXTRA [Suspect]
     Indication: ARTHRALGIA
     Dosage: 20 MG (20 MG, 1 IN 1 CYCLICAL), ORAL
     Route: 048
     Dates: start: 20020101
  3. ALLOPURINOL [Concomitant]
  4. METOPROLOL TARTRATE [Concomitant]
  5. VITAMINS (VITAMINS) [Concomitant]

REACTIONS (8)
  - ARTHRALGIA [None]
  - INJURY [None]
  - JOINT SPRAIN [None]
  - MALAISE [None]
  - PROSTATE CANCER [None]
  - PROSTATIC DISORDER [None]
  - STOMACH DISCOMFORT [None]
  - SWELLING [None]
